FAERS Safety Report 14065975 (Version 3)
Quarter: 2017Q4

REPORT INFORMATION
  Report Type: Spontaneous
  Country: AT (occurrence: AT)
  Receive Date: 20171009
  Receipt Date: 20171227
  Transmission Date: 20180321
  Serious: Yes (Hospitalization, Other)
  Sender: FDA-Public Use
  Company Number: AT-JNJFOC-20170930904

PATIENT
  Age: 82 Year
  Sex: Female
  Weight: 84 kg

DRUGS (16)
  1. SEROQUEL [Suspect]
     Active Substance: QUETIAPINE FUMARATE
     Indication: PRODUCT USED FOR UNKNOWN INDICATION
     Route: 065
     Dates: start: 20170330, end: 20170401
  2. HALDOL [Suspect]
     Active Substance: HALOPERIDOL
     Indication: DELIRIUM
     Route: 048
     Dates: start: 20170330, end: 20170401
  3. TRITTICO [Concomitant]
     Active Substance: TRAZODONE HYDROCHLORIDE
     Route: 048
     Dates: start: 20170330
  4. SEROQUEL [Suspect]
     Active Substance: QUETIAPINE FUMARATE
     Indication: PRODUCT USED FOR UNKNOWN INDICATION
     Dosage: 0.07 MG
     Route: 065
     Dates: start: 20170328
  5. CONCOR [Concomitant]
     Active Substance: BISOPROLOL FUMARATE
     Route: 048
     Dates: end: 20170331
  6. DIGIMERCK [Concomitant]
     Active Substance: DIGITOXIN
     Dosage: 0.07 MG PAUSED ON SATURDAY AND SUNDAY
     Route: 048
  7. TEMESTA (LORAZEPAM) [Concomitant]
     Active Substance: LORAZEPAM
     Route: 048
     Dates: start: 20170401, end: 20170402
  8. TEMESTA (LORAZEPAM) [Concomitant]
     Active Substance: LORAZEPAM
     Route: 048
     Dates: start: 20170406, end: 20170408
  9. ELIQUIS [Concomitant]
     Active Substance: APIXABAN
     Route: 048
  10. HALDOL [Suspect]
     Active Substance: HALOPERIDOL
     Indication: DELIRIUM
     Route: 048
     Dates: start: 20170401, end: 20170402
  11. DAFLON [Concomitant]
     Active Substance: DIOSMIN\HESPERIDIN
     Route: 048
  12. FOLSAN [Concomitant]
     Active Substance: FOLIC ACID
     Route: 048
  13. EXFORGE HCT [Concomitant]
     Active Substance: AMLODIPINE BESYLATE\HYDROCHLOROTHIAZIDE\VALSARTAN
     Dosage: 5/160/12.5 MG
     Route: 048
     Dates: start: 20170330, end: 20170331
  14. EFFORTIL [Concomitant]
     Active Substance: ETILEFRINE HYDROCHLORIDE
     Dosage: 0.07 MG
     Route: 048
     Dates: start: 20170401, end: 20170402
  15. TEMESTA (LORAZEPAM) [Concomitant]
     Active Substance: LORAZEPAM
     Dosage: 0.07 MG
     Route: 048
     Dates: start: 20170331, end: 20170331
  16. PANTOLOC [Concomitant]
     Active Substance: PANTOPRAZOLE SODIUM
     Route: 048

REACTIONS (3)
  - Urinary tract infection [Unknown]
  - Urinary retention [Recovered/Resolved]
  - Hypertension [Unknown]

NARRATIVE: CASE EVENT DATE: 20170402
